FAERS Safety Report 25059852 (Version 1)
Quarter: 2025Q1

REPORT INFORMATION
  Report Type: Spontaneous
  Country: US (occurrence: US)
  Receive Date: 20250310
  Receipt Date: 20250310
  Transmission Date: 20250409
  Serious: No
  Sender: GALPHARM INTERNATIONAL
  Company Number: US-PERRIGO-24US011345

PATIENT
  Age: 30 Year
  Sex: Male

DRUGS (2)
  1. ACETAMINOPHEN AND IBUPROFEN [Suspect]
     Active Substance: ACETAMINOPHEN\IBUPROFEN
     Indication: Toothache
     Route: 048
     Dates: start: 20241201
  2. ACETAMINOPHEN AND IBUPROFEN [Suspect]
     Active Substance: ACETAMINOPHEN\IBUPROFEN
     Route: 048
     Dates: start: 20241205, end: 20241205

REACTIONS (2)
  - Drug ineffective [Unknown]
  - Extra dose administered [Recovered/Resolved]

NARRATIVE: CASE EVENT DATE: 20241205
